FAERS Safety Report 22321960 (Version 2)
Quarter: 2023Q4

REPORT INFORMATION
  Report Type: Spontaneous
  Country: US (occurrence: US)
  Receive Date: 20230516
  Receipt Date: 20231101
  Transmission Date: 20240109
  Serious: No
  Sender: FDA-Public Use
  Company Number: US-PHARMAESSENTIA CORPORATION-US-2023-PEC-001222

PATIENT
  Sex: Male

DRUGS (1)
  1. BESREMI [Suspect]
     Active Substance: ROPEGINTERFERON ALFA-2B-NJFT
     Indication: Polycythaemia vera
     Dosage: 100MCG ON DAY 1, THEN INCREASE DOSE 50MCG EVERY 2 WEEKS UP TO 500MCG
     Route: 058
     Dates: start: 20230304

REACTIONS (2)
  - Hypersomnia [Unknown]
  - Fatigue [Unknown]
